FAERS Safety Report 11145907 (Version 1)
Quarter: 2015Q2

REPORT INFORMATION
  Report Type: Spontaneous
  Country: US (occurrence: US)
  Receive Date: 20150528
  Receipt Date: 20150528
  Transmission Date: 20150821
  Serious: Yes (Death, Other)
  Sender: FDA-Public Use
  Company Number: CHPA2015US006705

PATIENT
  Sex: Male

DRUGS (1)
  1. VOLTAREN [Suspect]
     Active Substance: DICLOFENAC SODIUM
     Indication: PAIN
     Dosage: A LITTLE BIT, UNK
     Route: 061

REACTIONS (5)
  - Wrong technique in drug usage process [Unknown]
  - Product use issue [Unknown]
  - Completed suicide [Fatal]
  - Drug dispensed to wrong patient [Unknown]
  - Cerebrovascular accident [Unknown]

NARRATIVE: CASE EVENT DATE: 2014
